FAERS Safety Report 19823935 (Version 1)
Quarter: 2021Q3

REPORT INFORMATION
  Report Type: Spontaneous
  Country: JP (occurrence: JP)
  Receive Date: 20210913
  Receipt Date: 20210913
  Transmission Date: 20211014
  Serious: Yes (Other)
  Sender: FDA-Public Use
  Company Number: JP-FERRINGPH-2021FE05781

PATIENT
  Age: 64 Year
  Sex: Male
  Weight: 58 kg

DRUGS (8)
  1. CASODEX [Concomitant]
     Active Substance: BICALUTAMIDE
     Indication: PROSTATE CANCER
     Dosage: 80 MG, DAILY
     Route: 048
     Dates: start: 20210519, end: 20210615
  2. XTANDI [Suspect]
     Active Substance: ENZALUTAMIDE
     Indication: PROSTATE CANCER METASTATIC
     Dosage: 80 MG, 1 TIME DAILY
     Route: 048
     Dates: start: 20210804
  3. GONAX [Suspect]
     Active Substance: DEGARELIX
     Indication: PROSTATE CANCER
     Dosage: 240 MG
     Route: 058
     Dates: start: 20210519
  4. SILODOSIN. [Concomitant]
     Active Substance: SILODOSIN
     Dosage: UNK
     Route: 065
     Dates: start: 20210427
  5. MAGMITT [Concomitant]
     Active Substance: MAGNESIUM OXIDE
     Dosage: UNK
     Route: 065
     Dates: start: 20210519
  6. XTANDI [Suspect]
     Active Substance: ENZALUTAMIDE
     Dosage: 80 MG, 2 TIMES DAILY
     Route: 048
     Dates: start: 20210616, end: 20210713
  7. GONAX [Suspect]
     Active Substance: DEGARELIX
     Dosage: 480 MG, EVERY 3RD MONTH
     Route: 058
     Dates: start: 20210616
  8. CALONAL [Concomitant]
     Active Substance: ACETAMINOPHEN
     Dosage: UNK
     Route: 065
     Dates: start: 20210427

REACTIONS (4)
  - White blood cell count decreased [Recovering/Resolving]
  - Anaemia [Not Recovered/Not Resolved]
  - Neutrophil count decreased [Recovered/Resolved]
  - Neutrophil count decreased [Recovered/Resolved]

NARRATIVE: CASE EVENT DATE: 20210714
